FAERS Safety Report 5121061-0 (Version None)
Quarter: 2006Q4

REPORT INFORMATION
  Report Type: 
  Country: None (occurrence: None)
  Receive Date: 20061005
  Receipt Date: 20060922
  Transmission Date: 20070319
  Serious: Yes (Other)
  Sender: FDA-Public Use
  Company Number: PHBS2006JP14919

PATIENT
  Age: 30 Year

DRUGS (4)
  1. NEORAL [Suspect]
     Indication: BEHCET'S SYNDROME
     Dosage: 100 MG/D
     Route: 048
     Dates: start: 20050101, end: 20060901
  2. NEORAL [Suspect]
     Dosage: 150 MG/D
     Route: 048
     Dates: start: 20060901
  3. COLCHICINE [Concomitant]
     Route: 048
  4. PREDNISOLONE [Concomitant]
     Route: 048

REACTIONS (1)
  - BLOOD ALKALINE PHOSPHATASE INCREASED [None]
